FAERS Safety Report 21919513 (Version 1)
Quarter: 2023Q1

REPORT INFORMATION
  Report Type: Spontaneous
  Country: NO (occurrence: NO)
  Receive Date: 20230127
  Receipt Date: 20230127
  Transmission Date: 20230417
  Serious: Yes (Other)
  Sender: FDA-Public Use
  Company Number: NO-JNJFOC-20230137975

PATIENT
  Age: 15 Year
  Sex: Male

DRUGS (2)
  1. CONCERTA [Suspect]
     Active Substance: METHYLPHENIDATE HYDROCHLORIDE
     Indication: Attention deficit hyperactivity disorder
     Route: 065
     Dates: start: 20180315, end: 20190615
  2. MELATONIN [Concomitant]
     Active Substance: MELATONIN

REACTIONS (8)
  - Substance-induced psychotic disorder [Not Recovered/Not Resolved]
  - Injury [Not Recovered/Not Resolved]
  - Angina pectoris [Not Recovered/Not Resolved]
  - Hallucination, visual [Not Recovered/Not Resolved]
  - Hallucination, auditory [Not Recovered/Not Resolved]
  - Weight increased [Unknown]
  - Headache [Not Recovered/Not Resolved]
  - Treatment noncompliance [Unknown]

NARRATIVE: CASE EVENT DATE: 20180615
